FAERS Safety Report 19666209 (Version 2)
Quarter: 2021Q3

REPORT INFORMATION
  Report Type: Spontaneous
  Country: RU (occurrence: RU)
  Receive Date: 20210806
  Receipt Date: 20210816
  Transmission Date: 20211014
  Serious: Yes (Other)
  Sender: FDA-Public Use
  Company Number: RU-LEO PHARMA-338096

PATIENT
  Age: 30 Year
  Sex: Female

DRUGS (1)
  1. SKINOREN [Suspect]
     Active Substance: AZELAIC ACID
     Indication: PRODUCT USED FOR UNKNOWN INDICATION
     Route: 065

REACTIONS (3)
  - Acne [Unknown]
  - Dry skin [Unknown]
  - Dependence [Unknown]
